FAERS Safety Report 4614843-2 (Version None)
Quarter: 2005Q1

REPORT INFORMATION
  Report Type: 
  Country: None (occurrence: None)
  Receive Date: 20050318
  Receipt Date: 20050318
  Transmission Date: 20050727
  Serious: No
  Sender: FDA-Public Use
  Company Number: None

PATIENT
  Age: 57 Year
  Sex: Male

DRUGS (1)
  1. ZOSYN [Suspect]
     Dosage: 3.375GM  IV   Q6H
     Route: 042
     Dates: start: 20041226, end: 20050102

REACTIONS (1)
  - RENAL FAILURE ACUTE [None]
